FAERS Safety Report 4881237-4 (Version None)
Quarter: 2006Q1

REPORT INFORMATION
  Report Type: 
  Country: None (occurrence: None)
  Receive Date: 20060116
  Receipt Date: 20051227
  Transmission Date: 20060701
  Serious: Yes (Death, Hospitalization)
  Sender: FDA-Public Use
  Company Number: JP-JNJFOC-20051205691

PATIENT
  Sex: Male

DRUGS (13)
  1. LEUSTATIN [Suspect]
     Indication: LYMPHOCYTIC LYMPHOMA
     Dosage: FREQUENCY UNSPECIFIED
     Route: 042
  2. RITUXIMAB [Concomitant]
     Indication: LYMPHOCYTIC LYMPHOMA
  3. SULFAMETHOXAZOLE AND TRIMETHOPRIM [Concomitant]
     Route: 048
  4. SULFAMETHOXAZOLE AND TRIMETHOPRIM [Concomitant]
     Indication: PROPHYLAXIS
     Route: 048
  5. MICAFUNGIN SODIUM [Concomitant]
     Indication: INFECTION
     Route: 042
  6. MEROPENEM TRIHYDRATE [Concomitant]
     Indication: INFECTION
     Route: 042
  7. ALLOPURINOL [Concomitant]
     Route: 048
  8. CONCENTRATED HUMAN BLOOD PLATELET [Concomitant]
     Route: 042
  9. CONCENTRATED HUMAN BLOOD PLATELET [Concomitant]
     Route: 042
  10. CONCENTRATED HUMAN BLOOD PLATELET [Concomitant]
     Route: 042
  11. CONCENTRATED HUMAN BLOOD PLATELET [Concomitant]
     Route: 042
  12. CONCENTRATED HUMAN RED BLOOD CELLS [Concomitant]
     Route: 042
  13. CONCENTRATED HUMAN RED BLOOD CELLS [Concomitant]
     Route: 042

REACTIONS (5)
  - LEUKOPENIA [None]
  - LYMPHOMA [None]
  - LYMPHOPENIA [None]
  - NEUTROPENIA [None]
  - THROMBOCYTOPENIA [None]
